FAERS Safety Report 10101584 (Version 1)
Quarter: 2014Q2

REPORT INFORMATION
  Report Type: Spontaneous
  Country: US (occurrence: US)
  Receive Date: 20140424
  Receipt Date: 20140424
  Transmission Date: 20141212
  Serious: Yes (Death)
  Sender: FDA-Public Use
  Company Number: US-JNJFOC-20140415355

PATIENT
  Sex: 0

DRUGS (54)
  1. DOXORUBICIN [Suspect]
     Indication: BURKITT^S LYMPHOMA
     Route: 042
  2. DOXORUBICIN [Suspect]
     Indication: BURKITT^S LEUKAEMIA
     Route: 042
  3. CYCLOPHOSPHAMIDE [Suspect]
     Indication: BURKITT^S LYMPHOMA
     Route: 042
  4. CYCLOPHOSPHAMIDE [Suspect]
     Indication: BURKITT^S LYMPHOMA
     Route: 042
  5. CYCLOPHOSPHAMIDE [Suspect]
     Indication: BURKITT^S LEUKAEMIA
     Route: 042
  6. CYCLOPHOSPHAMIDE [Suspect]
     Indication: BURKITT^S LEUKAEMIA
     Route: 042
  7. PREDNISONE [Suspect]
     Indication: BURKITT^S LYMPHOMA
     Route: 048
  8. PREDNISONE [Suspect]
     Indication: BURKITT^S LEUKAEMIA
     Route: 048
  9. ALLOPURINOL [Suspect]
     Indication: BURKITT^S LYMPHOMA
     Route: 048
  10. ALLOPURINOL [Suspect]
     Indication: BURKITT^S LEUKAEMIA
     Route: 048
  11. IFOSFAMIDE [Suspect]
     Indication: BURKITT^S LYMPHOMA
     Route: 042
  12. IFOSFAMIDE [Suspect]
     Indication: BURKITT^S LEUKAEMIA
     Route: 042
  13. MESNA [Suspect]
     Indication: BURKITT^S LYMPHOMA
     Route: 065
  14. MESNA [Suspect]
     Indication: BURKITT^S LEUKAEMIA
     Route: 065
  15. DEXAMETHASONE [Suspect]
     Indication: BURKITT^S LYMPHOMA
     Route: 065
  16. DEXAMETHASONE [Suspect]
     Indication: BURKITT^S LYMPHOMA
     Route: 065
  17. DEXAMETHASONE [Suspect]
     Indication: BURKITT^S LEUKAEMIA
     Route: 065
  18. DEXAMETHASONE [Suspect]
     Indication: BURKITT^S LEUKAEMIA
     Route: 065
  19. METHOTREXATE [Suspect]
     Indication: BURKITT^S LYMPHOMA
     Route: 042
  20. METHOTREXATE [Suspect]
     Indication: BURKITT^S LYMPHOMA
     Route: 042
  21. METHOTREXATE [Suspect]
     Indication: BURKITT^S LEUKAEMIA
     Route: 042
  22. METHOTREXATE [Suspect]
     Indication: BURKITT^S LEUKAEMIA
     Route: 042
  23. LEUCOVORIN [Suspect]
     Indication: BURKITT^S LYMPHOMA
     Route: 065
  24. LEUCOVORIN [Suspect]
     Indication: BURKITT^S LYMPHOMA
     Route: 065
  25. LEUCOVORIN [Suspect]
     Indication: BURKITT^S LYMPHOMA
     Route: 065
  26. LEUCOVORIN [Suspect]
     Indication: BURKITT^S LYMPHOMA
     Route: 065
  27. LEUCOVORIN [Suspect]
     Indication: BURKITT^S LEUKAEMIA
     Route: 065
  28. LEUCOVORIN [Suspect]
     Indication: BURKITT^S LEUKAEMIA
     Route: 065
  29. LEUCOVORIN [Suspect]
     Indication: BURKITT^S LEUKAEMIA
     Route: 065
  30. LEUCOVORIN [Suspect]
     Indication: BURKITT^S LEUKAEMIA
     Route: 065
  31. VINCRISTINE [Suspect]
     Indication: BURKITT^S LYMPHOMA
     Route: 065
  32. VINCRISTINE [Suspect]
     Indication: BURKITT^S LYMPHOMA
     Route: 065
  33. VINCRISTINE [Suspect]
     Indication: BURKITT^S LEUKAEMIA
     Route: 065
  34. VINCRISTINE [Suspect]
     Indication: BURKITT^S LEUKAEMIA
     Route: 065
  35. CYTARABINE [Suspect]
     Indication: BURKITT^S LYMPHOMA
     Route: 042
  36. CYTARABINE [Suspect]
     Indication: BURKITT^S LEUKAEMIA
     Route: 042
  37. ETOPOSIDE [Suspect]
     Indication: BURKITT^S LYMPHOMA
     Route: 065
  38. ETOPOSIDE [Suspect]
     Indication: BURKITT^S LEUKAEMIA
     Route: 065
  39. FILGRASTIM [Suspect]
     Indication: BURKITT^S LYMPHOMA
     Route: 065
  40. FILGRASTIM [Suspect]
     Indication: BURKITT^S LYMPHOMA
     Route: 065
  41. FILGRASTIM [Suspect]
     Indication: BURKITT^S LEUKAEMIA
     Route: 065
  42. FILGRASTIM [Suspect]
     Indication: BURKITT^S LEUKAEMIA
     Route: 065
  43. FILGRASTIM [Suspect]
     Indication: BURKITT^S LEUKAEMIA
     Route: 065
  44. FILGRASTIM [Suspect]
     Indication: BURKITT^S LEUKAEMIA
     Route: 065
  45. RITUXIMAB [Suspect]
     Indication: BURKITT^S LYMPHOMA
     Route: 065
  46. RITUXIMAB [Suspect]
     Indication: BURKITT^S LYMPHOMA
     Route: 065
  47. RITUXIMAB [Suspect]
     Indication: BURKITT^S LEUKAEMIA
     Route: 065
  48. RITUXIMAB [Suspect]
     Indication: BURKITT^S LEUKAEMIA
     Route: 065
  49. METHOTREXATE [Suspect]
     Indication: BURKITT^S LYMPHOMA
     Route: 037
  50. METHOTREXATE [Suspect]
     Indication: BURKITT^S LEUKAEMIA
     Route: 037
  51. CYTARABINE [Suspect]
     Indication: BURKITT^S LYMPHOMA
     Route: 037
  52. CYTARABINE [Suspect]
     Indication: BURKITT^S LEUKAEMIA
     Route: 037
  53. HYDROCORTISONE [Suspect]
     Indication: BURKITT^S LYMPHOMA
     Route: 037
  54. HYDROCORTISONE [Suspect]
     Indication: BURKITT^S LEUKAEMIA
     Route: 037

REACTIONS (1)
  - Unevaluable event [Fatal]
